FAERS Safety Report 6707190-6 (Version None)
Quarter: 2010Q2

REPORT INFORMATION
  Report Type: 
  Country: None (occurrence: None)
  Receive Date: 20100503
  Receipt Date: 20090821
  Transmission Date: 20101027
  Serious: No
  Sender: FDA-Public Use
  Company Number: US-ASTRAZENECA-2009SE09382

PATIENT
  Age: 56 Year
  Sex: Male
  Weight: 86.2 kg

DRUGS (7)
  1. NEXIUM [Suspect]
     Indication: GASTROOESOPHAGEAL REFLUX DISEASE
     Route: 065
     Dates: start: 20081201
  2. NEXIUM [Suspect]
     Route: 065
     Dates: start: 20090701
  3. LISINOPRIL [Concomitant]
  4. ADVAIR DISKUS 100/50 [Concomitant]
  5. ALLEGRA [Concomitant]
  6. LORZEPAM [Concomitant]
     Indication: SLEEP DISORDER
  7. FLONASE [Concomitant]

REACTIONS (2)
  - NAIL DISCOLOURATION [None]
  - ONYCHOCLASIS [None]
